FAERS Safety Report 24978592 (Version 1)
Quarter: 2025Q1

REPORT INFORMATION
  Report Type: Report from Study
  Country: DE (occurrence: DE)
  Receive Date: 20250218
  Receipt Date: 20250218
  Transmission Date: 20250409
  Serious: Yes (Hospitalization)
  Sender: ABBVIE
  Company Number: DE-ABBVIE-6105981

PATIENT
  Age: 70 Year
  Sex: Male

DRUGS (2)
  1. FOSCARBIDOPA\FOSLEVODOPA [Suspect]
     Active Substance: FOSCARBIDOPA\FOSLEVODOPA
     Indication: Parkinson^s disease
     Route: 058
     Dates: start: 20250122, end: 20250124
  2. FOSCARBIDOPA\FOSLEVODOPA [Suspect]
     Active Substance: FOSCARBIDOPA\FOSLEVODOPA
     Route: 058
     Dates: start: 20250124

REACTIONS (6)
  - Urinary retention [Unknown]
  - Hypokinesia [Recovered/Resolved]
  - Parkinson^s disease [Unknown]
  - Agitation [Unknown]
  - Polyneuropathy [Not Recovered/Not Resolved]
  - Panic reaction [Unknown]

NARRATIVE: CASE EVENT DATE: 20250101
